FAERS Safety Report 21948637 (Version 3)
Quarter: 2023Q2

REPORT INFORMATION
  Report Type: Spontaneous
  Country: JP (occurrence: JP)
  Receive Date: 20230203
  Receipt Date: 20230420
  Transmission Date: 20230722
  Serious: Yes (Death, Hospitalization)
  Sender: FDA-Public Use
  Company Number: JP-MSD-M2023-03499

PATIENT
  Age: 85 Year
  Sex: Male
  Weight: 38 kg

DRUGS (46)
  1. KEYTRUDA [Suspect]
     Active Substance: PEMBROLIZUMAB
     Indication: Lung squamous cell carcinoma stage IV
     Dosage: 200 MILLIGRAM, Q3W
     Route: 041
     Dates: start: 20220902, end: 20220902
  2. KEYTRUDA [Suspect]
     Active Substance: PEMBROLIZUMAB
     Dosage: 200 MILLIGRAM, Q3W
     Route: 041
     Dates: start: 20220927, end: 20221220
  3. CARBOPLATIN [Concomitant]
     Active Substance: CARBOPLATIN
     Indication: Lung squamous cell carcinoma stage IV
     Dosage: 200 MILLIGRAM
     Route: 065
     Dates: start: 20220902, end: 20220902
  4. CARBOPLATIN [Concomitant]
     Active Substance: CARBOPLATIN
     Dosage: 250 MILLIGRAM
     Route: 065
     Dates: start: 20220927, end: 20220927
  5. CARBOPLATIN [Concomitant]
     Active Substance: CARBOPLATIN
     Dosage: 200 MILLIGRAM
     Route: 065
     Dates: start: 20221018, end: 20221018
  6. CARBOPLATIN [Concomitant]
     Active Substance: CARBOPLATIN
     Dosage: 250 MILLIGRAM
     Route: 065
     Dates: start: 20221108, end: 20221108
  7. PACLITAXEL [Concomitant]
     Active Substance: PACLITAXEL
     Indication: Lung squamous cell carcinoma stage IV
     Dosage: 65 MILLIGRAM
     Route: 065
     Dates: start: 20220902, end: 20220927
  8. PACLITAXEL [Concomitant]
     Active Substance: PACLITAXEL
     Dosage: 60 MILLIGRAM
     Route: 065
     Dates: start: 20221018, end: 20221018
  9. PACLITAXEL [Concomitant]
     Active Substance: PACLITAXEL
     Dosage: 65 MILLIGRAM
     Route: 065
     Dates: start: 20221108, end: 20221108
  10. ENSURE [Concomitant]
     Active Substance: AMINO ACIDS\DEXTROSE\ELECTROLYTES NOS\SOYBEAN OIL\VITAMINS
     Dosage: UNK, QD
     Route: 065
     Dates: start: 20221129
  11. SYMPROIC [Concomitant]
     Active Substance: NALDEMEDINE
     Dosage: UNK, QD
     Route: 065
     Dates: start: 20221129, end: 2022
  12. SYMPROIC [Concomitant]
     Active Substance: NALDEMEDINE
     Dosage: 0.2 MILLIGRAM, QD
     Route: 065
     Dates: start: 20221220, end: 20230112
  13. CALCIUM CARBONATE\CHOLECALCIFEROL\MAGNESIUM CARBONATE [Concomitant]
     Active Substance: CALCIUM CARBONATE\CHOLECALCIFEROL\MAGNESIUM CARBONATE
     Dosage: UNK, QD
     Route: 065
     Dates: start: 20221129, end: 2022
  14. CALCIUM CARBONATE\CHOLECALCIFEROL\MAGNESIUM CARBONATE [Concomitant]
     Active Substance: CALCIUM CARBONATE\CHOLECALCIFEROL\MAGNESIUM CARBONATE
     Dosage: 2T, QD
     Route: 065
     Dates: start: 20221220, end: 20230105
  15. CALCIUM CARBONATE\CHOLECALCIFEROL\MAGNESIUM CARBONATE [Concomitant]
     Active Substance: CALCIUM CARBONATE\CHOLECALCIFEROL\MAGNESIUM CARBONATE
     Dosage: 4T, QD
     Route: 065
     Dates: start: 20230106, end: 20230109
  16. CALCIUM CARBONATE\CHOLECALCIFEROL\MAGNESIUM CARBONATE [Concomitant]
     Active Substance: CALCIUM CARBONATE\CHOLECALCIFEROL\MAGNESIUM CARBONATE
     Dosage: 2T, QD
     Route: 065
     Dates: start: 20230110, end: 20230111
  17. OXYCODONE HYDROCHLORIDE [Concomitant]
     Active Substance: OXYCODONE HYDROCHLORIDE
     Dosage: UNK, BID
     Route: 065
     Dates: start: 20221129, end: 2022
  18. OXYCODONE HYDROCHLORIDE [Concomitant]
     Active Substance: OXYCODONE HYDROCHLORIDE
     Dosage: 20 MILLIGRAM, BID
     Route: 065
     Dates: start: 20221220, end: 20230109
  19. ROZEREM [Concomitant]
     Active Substance: RAMELTEON
     Dosage: UNK, QD
     Route: 065
     Dates: start: 20221207, end: 202212
  20. ROZEREM [Concomitant]
     Active Substance: RAMELTEON
     Dosage: 8 MILLIGRAM, QD
     Route: 065
     Dates: start: 20221220, end: 20230112
  21. ETIZOLAM [Concomitant]
     Active Substance: ETIZOLAM
     Dosage: UNK, QD
     Route: 065
     Dates: start: 20221207, end: 202212
  22. ETIZOLAM [Concomitant]
     Active Substance: ETIZOLAM
     Dosage: 0.5 MILLIGRAM, QD
     Route: 065
     Dates: start: 20221220, end: 20230108
  23. TULOBUTEROL [Concomitant]
     Active Substance: TULOBUTEROL
     Dosage: UNK, QD
     Route: 065
     Dates: start: 20221207, end: 202212
  24. TULOBUTEROL [Concomitant]
     Active Substance: TULOBUTEROL
     Dosage: 2 MILLIGRAM, QD
     Route: 065
     Dates: start: 20221220, end: 20221222
  25. TULOBUTEROL [Concomitant]
     Active Substance: TULOBUTEROL
     Dosage: 2 MILLIGRAM, QD
     Route: 065
     Dates: start: 20230106, end: 20230112
  26. AMBROXOL HYDROCHLORIDE [Concomitant]
     Active Substance: AMBROXOL HYDROCHLORIDE
     Dosage: UNK, QD
     Route: 065
     Dates: start: 20221207, end: 202212
  27. AMBROXOL HYDROCHLORIDE [Concomitant]
     Active Substance: AMBROXOL HYDROCHLORIDE
     Dosage: 45 MILLIGRAM, QD
     Route: 065
     Dates: start: 20221220, end: 20230105
  28. AMBROXOL HYDROCHLORIDE [Concomitant]
     Active Substance: AMBROXOL HYDROCHLORIDE
     Dosage: 90 MILLIGRAM, QD
     Route: 065
     Dates: start: 20230106, end: 20230112
  29. NEXIUM [Concomitant]
     Active Substance: ESOMEPRAZOLE MAGNESIUM
     Dosage: UNK, QD
     Route: 065
     Dates: start: 20221207, end: 202212
  30. NEXIUM [Concomitant]
     Active Substance: ESOMEPRAZOLE MAGNESIUM
     Dosage: 20 MILLIGRAM, QD
     Route: 065
     Dates: start: 20221220, end: 20230103
  31. NEXIUM [Concomitant]
     Active Substance: ESOMEPRAZOLE MAGNESIUM
     Dosage: 20 MILLIGRAM, QD
     Route: 065
     Dates: start: 20230105, end: 20230112
  32. CARBOCYSTEINE [Concomitant]
     Active Substance: CARBOCYSTEINE
     Dosage: UNK, TID
     Route: 065
     Dates: start: 20221207, end: 202212
  33. CARBOCYSTEINE [Concomitant]
     Active Substance: CARBOCYSTEINE
     Dosage: 500 MILLIGRAM, TID
     Route: 065
     Dates: start: 20221220, end: 20230102
  34. CARBOCYSTEINE [Concomitant]
     Active Substance: CARBOCYSTEINE
     Dosage: 500 MILLIGRAM, TID
     Route: 065
     Dates: start: 20230106, end: 20230112
  35. MAGNESIUM OXIDE [Concomitant]
     Active Substance: MAGNESIUM OXIDE
     Dosage: UNK, TID
     Route: 065
     Dates: start: 20221207, end: 202212
  36. MAGNESIUM OXIDE [Concomitant]
     Active Substance: MAGNESIUM OXIDE
     Dosage: 500 MILLIGRAM, TID
     Route: 065
     Dates: start: 20221220, end: 20221229
  37. MAGNESIUM OXIDE [Concomitant]
     Active Substance: MAGNESIUM OXIDE
     Dosage: 500 MILLIGRAM, TID
     Route: 065
     Dates: start: 20230105, end: 20230105
  38. ZOLPIDEM TARTRATE [Concomitant]
     Active Substance: ZOLPIDEM TARTRATE
     Dosage: UNK UNK, QD
     Route: 065
     Dates: start: 20221207, end: 202212
  39. ZOLPIDEM TARTRATE [Concomitant]
     Active Substance: ZOLPIDEM TARTRATE
     Dosage: 5 MILLIGRAM, QD
     Route: 065
     Dates: start: 20221220, end: 20230104
  40. ZOLPIDEM TARTRATE [Concomitant]
     Active Substance: ZOLPIDEM TARTRATE
     Dosage: 10 MILLIGRAM, QD
     Route: 065
     Dates: start: 20230105, end: 20230105
  41. ZOLPIDEM TARTRATE [Concomitant]
     Active Substance: ZOLPIDEM TARTRATE
     Dosage: 5 MILLIGRAM, QD
     Route: 065
     Dates: start: 20230108, end: 20230109
  42. ZOLPIDEM TARTRATE [Concomitant]
     Active Substance: ZOLPIDEM TARTRATE
     Dosage: 10 MILLIGRAM, QD
     Route: 065
     Dates: start: 20230110, end: 20230112
  43. ZOLPIDEM TARTRATE [Concomitant]
     Active Substance: ZOLPIDEM TARTRATE
     Dosage: 5 MILLIGRAM, QD
     Route: 065
     Dates: start: 20230113, end: 20230114
  44. ZOLPIDEM TARTRATE [Concomitant]
     Active Substance: ZOLPIDEM TARTRATE
     Dosage: 10 MILLIGRAM, QD
     Route: 065
     Dates: start: 20230202, end: 20230206
  45. ZOLPIDEM TARTRATE [Concomitant]
     Active Substance: ZOLPIDEM TARTRATE
     Dosage: 5 MILLIGRAM, QD
     Route: 065
     Dates: start: 20230207, end: 20230209
  46. ZOLPIDEM TARTRATE [Concomitant]
     Active Substance: ZOLPIDEM TARTRATE
     Dosage: 2.5 MILLIGRAM, QD
     Route: 065
     Dates: start: 20230210, end: 20230212

REACTIONS (2)
  - Laryngopharyngitis [Fatal]
  - Mucosal inflammation [Fatal]

NARRATIVE: CASE EVENT DATE: 20221220
